FAERS Safety Report 25872270 (Version 2)
Quarter: 2025Q4

REPORT INFORMATION
  Report Type: Spontaneous
  Country: TW (occurrence: TW)
  Receive Date: 20251002
  Receipt Date: 20251024
  Transmission Date: 20260118
  Serious: Yes (Hospitalization, Other)
  Sender: AMGEN
  Company Number: TW-AMGEN-TWNSP2025192145

PATIENT
  Age: 74 Year
  Sex: Female

DRUGS (1)
  1. PROLIA [Suspect]
     Active Substance: DENOSUMAB
     Indication: Osteoporosis
     Dosage: 60 MILLIGRAM, Q6MO
     Route: 058

REACTIONS (9)
  - Bacterial infection [Recovering/Resolving]
  - Fall [Unknown]
  - Gait inability [Unknown]
  - Femur fracture [Unknown]
  - Musculoskeletal pain [Not Recovered/Not Resolved]
  - Impaired healing [Unknown]
  - Off label use [Unknown]
  - Muscle spasms [Recovered/Resolved]
  - Pain [Not Recovered/Not Resolved]

NARRATIVE: CASE EVENT DATE: 20240101
